FAERS Safety Report 7054066-3 (Version None)
Quarter: 2010Q4

REPORT INFORMATION
  Report Type: 
  Country: None (occurrence: None)
  Receive Date: 20101020
  Receipt Date: 20100922
  Transmission Date: 20110411
  Serious: Yes (Hospitalization)
  Sender: FDA-Public Use
  Company Number: CN-BAYER-201037519GPV

PATIENT
  Age: 70 Year
  Sex: Female

DRUGS (5)
  1. GLUCOBAY [Suspect]
     Indication: DIABETES MELLITUS
     Dosage: TOTAL DAILY DOSE: 50 MG
     Route: 048
     Dates: start: 20090711, end: 20090711
  2. GLIPIZIDE [Concomitant]
     Indication: DIABETES MELLITUS
  3. METFORMIN HCL [Concomitant]
     Indication: DIABETES MELLITUS
  4. FELODIPINE [Concomitant]
     Indication: HYPERTENSION
  5. INSULIN [Concomitant]
     Indication: DIABETES MELLITUS

REACTIONS (4)
  - ARRHYTHMIA [None]
  - CHEST DISCOMFORT [None]
  - DYSPNOEA [None]
  - PALPITATIONS [None]
